FAERS Safety Report 15188370 (Version 1)
Quarter: 2018Q3

REPORT INFORMATION
  Report Type: Spontaneous
  Country: EG (occurrence: EG)
  Receive Date: 20180724
  Receipt Date: 20180724
  Transmission Date: 20181010
  Serious: Yes (Other)
  Sender: FDA-Public Use
  Company Number: EG-ACCORD-069797

PATIENT
  Age: 73 Year
  Sex: Female

DRUGS (4)
  1. CYTARABINE/CYTARABINE HYDROCHLORIDE/CYTARABINE OCFOSFATE [Suspect]
     Active Substance: CYTARABINE
     Indication: B-CELL LYMPHOMA
  2. BENDAMUSTINE/BENDAMUSTINE HYDROCHLORIDE [Concomitant]
     Indication: B-CELL LYMPHOMA
  3. METHOTREXATE. [Suspect]
     Active Substance: METHOTREXATE
     Indication: B-CELL LYMPHOMA
     Dosage: ONE WEEK AFTER THE SECOND DOSE OF INTRATHECAL CHEMOTHERAPY
     Route: 037
  4. RITUXIMAB. [Concomitant]
     Active Substance: RITUXIMAB
     Indication: B-CELL LYMPHOMA

REACTIONS (1)
  - Lumbosacral radiculopathy [Not Recovered/Not Resolved]
